FAERS Safety Report 8559721-1 (Version None)
Quarter: 2012Q3

REPORT INFORMATION
  Report Type: 
  Country: None (occurrence: None)
  Receive Date: 20120802
  Receipt Date: 20120731
  Transmission Date: 20120928
  Serious: No
  Sender: FDA-Public Use
  Company Number: US-PFIZER INC-2012186744

PATIENT
  Sex: Male
  Weight: 100 kg

DRUGS (1)
  1. CHANTIX [Suspect]
     Indication: SMOKING CESSATION THERAPY
     Dosage: UNK
     Dates: start: 20120601

REACTIONS (3)
  - DIZZINESS [None]
  - AGGRESSION [None]
  - FEELING ABNORMAL [None]
